FAERS Safety Report 4424886-X (Version None)
Quarter: 2004Q3

REPORT INFORMATION
  Report Type: 
  Country: None (occurrence: None)
  Receive Date: 20040719
  Receipt Date: 20040315
  Transmission Date: 20050211
  Serious: Yes (Hospitalization)
  Sender: FDA-Public Use
  Company Number: 194249

PATIENT
  Age: 53 Year
  Sex: Female
  Weight: 68.0396 kg

DRUGS (6)
  1. AVONEX [Suspect]
     Indication: MULTIPLE SCLEROSIS
     Dosage: 30 MCG QW IM
     Route: 030
     Dates: start: 19990101, end: 20040101
  2. AVONEX [Suspect]
     Indication: MULTIPLE SCLEROSIS
     Dosage: 30 MCG QW IM
     Route: 030
     Dates: start: 20040101
  3. AMANTADINE HCL [Concomitant]
  4. VERAPAMIL [Concomitant]
  5. OXYBUTYN [Concomitant]
  6. AZITHROMYCIN [Concomitant]

REACTIONS (2)
  - INJECTION SITE ABSCESS [None]
  - MULTIPLE SCLEROSIS RELAPSE [None]
